FAERS Safety Report 8998674 (Version 2)
Quarter: 2013Q1

REPORT INFORMATION
  Report Type: Spontaneous
  Country: BE (occurrence: BE)
  Receive Date: 20130103
  Receipt Date: 20130122
  Transmission Date: 20140127
  Serious: Yes (Hospitalization, Other)
  Sender: FDA-Public Use
  Company Number: BE-JNJFOC-20130100314

PATIENT
  Sex: Female

DRUGS (3)
  1. XARELTO [Suspect]
     Indication: CEREBROVASCULAR ACCIDENT PROPHYLAXIS
     Route: 048
  2. XARELTO [Suspect]
     Indication: ATRIAL FIBRILLATION
     Route: 048
  3. ANTIHYPERTENSIVES [Concomitant]
     Route: 065

REACTIONS (4)
  - Cerebrovascular accident [Unknown]
  - Coma [Recovered/Resolved]
  - Altered state of consciousness [Unknown]
  - Aphasia [Not Recovered/Not Resolved]
